FAERS Safety Report 6431200-7 (Version None)
Quarter: 2009Q4

REPORT INFORMATION
  Report Type: 
  Country: None (occurrence: None)
  Receive Date: 20091106
  Receipt Date: 20091026
  Transmission Date: 20100525
  Serious: Yes (Other)
  Sender: FDA-Public Use
  Company Number: NZ-PFIZER INC-2009289339

PATIENT
  Age: 48 Year
  Sex: Female

DRUGS (1)
  1. PHENYTOIN AND PHENYTOIN SODIUM [Suspect]

REACTIONS (2)
  - DRUG TOXICITY [None]
  - HYPOTHYROIDISM [None]
